FAERS Safety Report 9813890 (Version 2)
Quarter: 2014Q1

REPORT INFORMATION
  Report Type: Spontaneous
  Country: US (occurrence: US)
  Receive Date: 20140113
  Receipt Date: 20140207
  Transmission Date: 20141002
  Serious: Yes (Death)
  Sender: FDA-Public Use
  Company Number: US-PFIZER INC-2014006275

PATIENT
  Age: 52 Year
  Sex: Male

DRUGS (5)
  1. ALPRAZOLAM [Suspect]
     Dosage: UNK
     Route: 048
  2. MIRTAZAPINE [Suspect]
     Dosage: UNK
     Route: 048
  3. OXYMORPHONE [Suspect]
     Dosage: UNK
     Route: 048
  4. CYCLOBENZAPRINE [Suspect]
     Dosage: UNK
     Route: 048
  5. PROMETHAZINE [Suspect]
     Dosage: UNK
     Route: 048

REACTIONS (1)
  - Completed suicide [Fatal]
